FAERS Safety Report 6510108-2 (Version None)
Quarter: 2009Q4

REPORT INFORMATION
  Report Type: 
  Country: None (occurrence: None)
  Receive Date: 20091217
  Receipt Date: 20091202
  Transmission Date: 20100525
  Serious: Yes (Hospitalization)
  Sender: FDA-Public Use
  Company Number: 2009AL007091

PATIENT
  Age: 53 Year
  Sex: Female

DRUGS (4)
  1. SULFATRIM PEDIATRIC [Suspect]
     Indication: DRUG USE FOR UNKNOWN INDICATION
  2. NORVIR [Concomitant]
  3. KIVEXA [Concomitant]
  4. REYATAZ [Concomitant]

REACTIONS (1)
  - CARDIOMYOPATHY [None]
